FAERS Safety Report 6681484-5 (Version None)
Quarter: 2010Q2

REPORT INFORMATION
  Report Type: 
  Country: None (occurrence: None)
  Receive Date: 20100414
  Receipt Date: 20100406
  Transmission Date: 20101027
  Serious: Yes (Death, Hospitalization, Other)
  Sender: FDA-Public Use
  Company Number: US-MERCK-1004USA00562

PATIENT
  Age: 59 Year
  Sex: Male

DRUGS (5)
  1. DECADRON [Suspect]
     Route: 048
     Dates: start: 20081201
  2. REVLIMID [Suspect]
     Indication: MULTIPLE MYELOMA
     Dosage: DAILY X 21 DAYS / OFF 1 WEEK
     Route: 048
     Dates: start: 20081216, end: 20100115
  3. FOLIC ACID [Concomitant]
     Route: 065
  4. VITAMINS (UNSPECIFIED) [Concomitant]
     Route: 065
  5. VITAMIN D (UNSPECIFIED) [Concomitant]
     Route: 065

REACTIONS (5)
  - ANAEMIA [None]
  - COLITIS [None]
  - NEUTROPENIA [None]
  - NEUTROPENIC SEPSIS [None]
  - SEPTIC SHOCK [None]
